FAERS Safety Report 9286105 (Version 1)
Quarter: 2013Q2

REPORT INFORMATION
  Report Type: Report from Study
  Country: BR (occurrence: BR)
  Receive Date: 20130513
  Receipt Date: 20130513
  Transmission Date: 20140414
  Serious: Yes (Other)
  Sender: FDA-Public Use
  Company Number: PHHY2013BR045751

PATIENT
  Age: 45 Year
  Sex: Female
  Weight: 71 kg

DRUGS (2)
  1. SANDOSTATIN LAR [Suspect]
     Indication: ACROMEGALY
     Dosage: UNK
  2. SANDOSTATIN LAR [Suspect]
     Dosage: 30 MG, PER 21 DAYS

REACTIONS (9)
  - Cerebrovascular accident [Unknown]
  - Diabetes mellitus [Unknown]
  - Visual acuity reduced [Not Recovered/Not Resolved]
  - Memory impairment [Not Recovered/Not Resolved]
  - Mental impairment [Unknown]
  - Weight decreased [Unknown]
  - Tinnitus [Unknown]
  - Hypoacusis [Not Recovered/Not Resolved]
  - Blood growth hormone decreased [Unknown]
